FAERS Safety Report 5804492-2 (Version None)
Quarter: 2008Q3

REPORT INFORMATION
  Report Type: 
  Country: None (occurrence: None)
  Receive Date: 20080709
  Receipt Date: 20080704
  Transmission Date: 20090109
  Serious: Yes (Other)
  Sender: FDA-Public Use
  Company Number: B0527809A

PATIENT
  Age: 59 Year
  Sex: Male

DRUGS (4)
  1. VALTREX [Suspect]
     Indication: HERPES ZOSTER
     Dosage: 1000MG THREE TIMES PER DAY
     Route: 048
     Dates: start: 20080624
  2. CYANOCOBALAMIN [Concomitant]
     Route: 065
  3. MUCOSTA [Concomitant]
     Route: 048
  4. LOXONIN [Concomitant]
     Route: 065

REACTIONS (3)
  - HAEMATURIA [None]
  - PROTEIN URINE PRESENT [None]
  - PYREXIA [None]
